FAERS Safety Report 9243405 (Version 1)
Quarter: 2013Q2

REPORT INFORMATION
  Report Type: Spontaneous
  Country: JP (occurrence: JP)
  Receive Date: 20130420
  Receipt Date: 20130420
  Transmission Date: 20140414
  Serious: Yes (Disabling)
  Sender: FDA-Public Use
  Company Number: JP-B.I. PHARMACEUTICALS,INC./RIDGEFIELD-2013-BI-10692NB

PATIENT
  Age: 65 Year
  Sex: Male

DRUGS (4)
  1. PRADAXA [Suspect]
     Dosage: 220 MG
     Route: 048
  2. ARTIST [Concomitant]
     Dosage: 10 MG
     Route: 048
  3. ALOSITOL [Concomitant]
     Dosage: 100 MG
     Route: 048
  4. LANSOPRAZOLE [Concomitant]
     Dosage: 15 MG
     Route: 048

REACTIONS (2)
  - Renal failure acute [Unknown]
  - Coagulation test abnormal [Unknown]
